FAERS Safety Report 19195371 (Version 1)
Quarter: 2021Q2

REPORT INFORMATION
  Report Type: Report from Study
  Country: US (occurrence: US)
  Receive Date: 20210429
  Receipt Date: 20210429
  Transmission Date: 20210717
  Serious: Yes (Hospitalization, Other)
  Sender: FDA-Public Use
  Company Number: US-TAKEDA-US202005059

PATIENT
  Sex: Male

DRUGS (26)
  1. ACETAMINOPHEN. [Concomitant]
     Active Substance: ACETAMINOPHEN
  2. ZYRTEC [Concomitant]
     Active Substance: CETIRIZINE HYDROCHLORIDE
  3. PANTOPRAZOLE [Concomitant]
     Active Substance: PANTOPRAZOLE
  4. ATORVASTATIN [Concomitant]
     Active Substance: ATORVASTATIN
  5. SYMBICORT [Concomitant]
     Active Substance: BUDESONIDE\FORMOTEROL FUMARATE DIHYDRATE
  6. ALBUTEROL [SALBUTAMOL SULFATE] [Concomitant]
     Active Substance: ALBUTEROL SULFATE
  7. PREDNISONE. [Concomitant]
     Active Substance: PREDNISONE
  8. FAMOTIDINE. [Concomitant]
     Active Substance: FAMOTIDINE
  9. CUVITRU [Suspect]
     Active Substance: HUMAN IMMUNOGLOBULIN G
     Dosage: 14 GRAM, 1/WEEK
     Route: 058
     Dates: start: 20200520
  10. DIPHENHYDRAMINE. [Concomitant]
     Active Substance: DIPHENHYDRAMINE
  11. DUPIXENT [Concomitant]
     Active Substance: DUPILUMAB
  12. EPINEPHRINE. [Concomitant]
     Active Substance: EPINEPHRINE
  13. THEOPHYLLINE [Concomitant]
     Active Substance: THEOPHYLLINE ANHYDROUS
  14. PROAIR [FLUTICASONE PROPIONATE] [Concomitant]
     Active Substance: FLUTICASONE PROPIONATE
  15. EPINEPHRINE. [Concomitant]
     Active Substance: EPINEPHRINE
  16. ASTRAGALUS MEMBRANACEUS ROOT [Concomitant]
  17. NASACORT [Concomitant]
     Active Substance: TRIAMCINOLONE ACETONIDE
  18. CUVITRU [Suspect]
     Active Substance: HUMAN IMMUNOGLOBULIN G
     Indication: PRIMARY IMMUNODEFICIENCY SYNDROME
     Dosage: UNK
     Route: 065
  19. FLUTICASONE. [Concomitant]
     Active Substance: FLUTICASONE
  20. FLONASE [Concomitant]
     Active Substance: FLUTICASONE PROPIONATE
  21. ALBUTEROL [SALBUTAMOL SULFATE] [Concomitant]
     Active Substance: ALBUTEROL SULFATE
  22. LMX 4 [Concomitant]
  23. MONTELUKAST [Concomitant]
     Active Substance: MONTELUKAST SODIUM
  24. SALINE NASAL MIST [Concomitant]
  25. ALLOPURINOL. [Concomitant]
     Active Substance: ALLOPURINOL
  26. SODIUM BICARBONATE. [Concomitant]
     Active Substance: SODIUM BICARBONATE

REACTIONS (4)
  - Memory impairment [Unknown]
  - Fatigue [Unknown]
  - Pneumonia [Unknown]
  - Dehydration [Unknown]
